FAERS Safety Report 19092186 (Version 1)
Quarter: 2021Q2

REPORT INFORMATION
  Report Type: Spontaneous
  Country: DE (occurrence: DE)
  Receive Date: 20210405
  Receipt Date: 20210405
  Transmission Date: 20210717
  Serious: Yes (Death, Hospitalization)
  Sender: FDA-Public Use
  Company Number: DE-ACCORD-221958

PATIENT
  Age: 5 Year
  Sex: Male
  Weight: 17 kg

DRUGS (8)
  1. FYCOMPA [Concomitant]
     Active Substance: PERAMPANEL
     Indication: LENNOX-GASTAUT SYNDROME
     Dosage: 0.5ML / ML SUSPENSION?DAILY DOSE: 0.5 MG MILLGRAM(S) EVERY DAYS
     Dates: start: 20191211, end: 20191217
  2. MYCOPHENOLIC ACID. [Suspect]
     Active Substance: MYCOPHENOLIC ACID
     Indication: GRAFT VERSUS HOST DISEASE
     Dosage: DAILY DOSE: 800 MG MILLGRAM(S) EVERY DAYS 2 SEPARATED DOSES
     Route: 048
     Dates: start: 201803, end: 20200104
  3. SULFAMETHOXAZOLE/TRIMETHOPRIM [Concomitant]
     Active Substance: SULFAMETHOXAZOLE\TRIMETHOPRIM
     Indication: INFECTION PROPHYLAXIS
     Dosage: 240MG / 5ML?DAILY DOSE: 80 MG MILLGRAM(S) EVERY WEEKS 2 SEPARATED DOSES
     Dates: start: 201410, end: 20200104
  4. ENALAPRIL [Concomitant]
     Active Substance: ENALAPRIL
     Indication: SECONDARY HYPERTENSION
     Dosage: DAILY DOSE: 3 MG MILLGRAM(S) EVERY DAYS
     Dates: start: 201410, end: 20200104
  5. ATENOLOL. [Concomitant]
     Active Substance: ATENOLOL
     Indication: SECONDARY HYPERTENSION
     Dosage: DAILY DOSE: 12.5 MG MILLGRAM(S) EVERY DAYS
     Dates: start: 201410, end: 20200104
  6. CICLOSPORIN [Suspect]
     Active Substance: CYCLOSPORINE
     Indication: GRAFT VERSUS HOST DISEASE
     Dosage: DAILY DOSE: 80 MG MILLGRAM(S) EVERY DAYS 2 SEPARATED DOSES
     Route: 048
     Dates: start: 201410, end: 20200104
  7. FLUCONAZOLE. [Concomitant]
     Active Substance: FLUCONAZOLE
     Indication: INFECTION PROPHYLAXIS
     Dosage: DAILY DOSE: 50 MG MILLGRAM(S) EVERY DAYS
     Dates: start: 201410, end: 20200104
  8. BRIVARACETAM [Concomitant]
     Active Substance: BRIVARACETAM
     Indication: LENNOX-GASTAUT SYNDROME
     Dosage: 10MG / ML?DAILY DOSE: 170 MG MILLGRAM(S) EVERY DAYS 2 SEPARATED DOSES
     Dates: start: 20190701, end: 20200104

REACTIONS (3)
  - Bacterial infection [Fatal]
  - Respiratory failure [Fatal]
  - Pneumonia pseudomonal [Fatal]

NARRATIVE: CASE EVENT DATE: 20191218
